FAERS Safety Report 20413070 (Version 3)
Quarter: 2022Q2

REPORT INFORMATION
  Report Type: Report from Study
  Country: DO (occurrence: DO)
  Receive Date: 20220201
  Receipt Date: 20220426
  Transmission Date: 20220721
  Serious: Yes (Hospitalization, Other)
  Sender: FDA-Public Use
  Company Number: DO-ABBVIE-22K-279-4259157-00

PATIENT
  Age: 49 Year
  Sex: Female
  Weight: 68.100 kg

DRUGS (2)
  1. HUMIRA [Suspect]
     Active Substance: ADALIMUMAB
     Indication: Rheumatoid arthritis
     Route: 058
     Dates: start: 20120730, end: 20211208
  2. HUMIRA [Suspect]
     Active Substance: ADALIMUMAB
     Route: 058

REACTIONS (10)
  - Joint injury [Recovering/Resolving]
  - Tendon injury [Recovering/Resolving]
  - Dental caries [Recovering/Resolving]
  - Tooth fracture [Recovering/Resolving]
  - Arthritis [Unknown]
  - Bone disorder [Unknown]
  - Procedural pain [Recovering/Resolving]
  - Inflammation [Recovering/Resolving]
  - Insomnia [Recovering/Resolving]
  - Pain [Recovering/Resolving]

NARRATIVE: CASE EVENT DATE: 20210101
